FAERS Safety Report 14312027 (Version 5)
Quarter: 2019Q1

REPORT INFORMATION
  Report Type: Report from Study
  Country: BE (occurrence: BE)
  Receive Date: 20171221
  Receipt Date: 20190312
  Transmission Date: 20190417
  Serious: Yes (Hospitalization, Other)
  Sender: FDA-Public Use
  Company Number: BE-IPSEN BIOPHARMACEUTICALS, INC.-2017-16062

PATIENT
  Age: 79 Year
  Sex: Male
  Weight: 57 kg

DRUGS (13)
  1. FLUOROURACIL. [Suspect]
     Active Substance: FLUOROURACIL
     Indication: COLORECTAL CANCER METASTATIC
     Route: 042
     Dates: start: 20170504, end: 2017
  2. FOLINIC ACID [Suspect]
     Active Substance: LEUCOVORIN
     Dosage: 648-650 MG
     Route: 065
     Dates: start: 20171012, end: 2017
  3. AVASTIN [Suspect]
     Active Substance: BEVACIZUMAB
     Indication: COLORECTAL CANCER METASTATIC
     Route: 042
     Dates: start: 20170504, end: 2017
  4. LAXIDO [Concomitant]
     Active Substance: POLYETHYLENE GLYCOL 3350\POTASSIUM CHLORIDE\SODIUM BICARBONATE\SODIUM CHLORIDE
  5. IRINOTECAN LIPOSOME [Suspect]
     Active Substance: IRINOTECAN
     Indication: COLORECTAL CANCER METASTATIC
     Dosage: 1 G
     Route: 042
     Dates: start: 20170504, end: 2017
  6. FOLINIC ACID [Suspect]
     Active Substance: LEUCOVORIN
     Route: 042
  7. IRINOTECAN LIPOSOME [Suspect]
     Active Substance: IRINOTECAN
     Indication: OFF LABEL USE
     Dosage: 1 G
     Route: 042
     Dates: start: 20170504
  8. IRINOTECAN LIPOSOME [Suspect]
     Active Substance: IRINOTECAN
     Dosage: NOT REPORTED
     Route: 042
  9. INNOHEP [Concomitant]
     Active Substance: TINZAPARIN SODIUM
  10. FOLINIC ACID [Suspect]
     Active Substance: LEUCOVORIN
     Indication: COLORECTAL CANCER METASTATIC
     Route: 042
     Dates: start: 20170504
  11. PANTOMED [Concomitant]
  12. AVASTIN [Suspect]
     Active Substance: BEVACIZUMAB
     Route: 042
  13. DOMPERIDONE [Concomitant]
     Active Substance: DOMPERIDONE

REACTIONS (15)
  - Off label use [Unknown]
  - Device related sepsis [Recovered/Resolved]
  - Pyrexia [Recovered/Resolved]
  - Decreased appetite [Recovered/Resolved]
  - Nausea [Recovered/Resolved]
  - Inappropriate schedule of product administration [Unknown]
  - Device related sepsis [Recovered/Resolved]
  - Lacrimation increased [Recovered/Resolved]
  - Fatigue [Recovered/Resolved]
  - Rhinorrhoea [Recovered/Resolved]
  - Dysgeusia [Recovered/Resolved]
  - Palmar-plantar erythrodysaesthesia syndrome [Recovered/Resolved]
  - Sepsis [Recovered/Resolved]
  - Dry mouth [Recovered/Resolved]
  - Musculoskeletal pain [Recovered/Resolved]

NARRATIVE: CASE EVENT DATE: 20170518
